FAERS Safety Report 15474167 (Version 3)
Quarter: 2018Q4

REPORT INFORMATION
  Report Type: Spontaneous
  Country: US (occurrence: US)
  Receive Date: 20181008
  Receipt Date: 20181212
  Transmission Date: 20190205
  Serious: Yes (Other)
  Sender: FDA-Public Use
  Company Number: US-SA-2018SA276038

PATIENT
  Age: 43 Year
  Sex: Female

DRUGS (13)
  1. TAXOTERE [Suspect]
     Active Substance: DOCETAXEL
     Dosage: 150 UNK, QCY
     Route: 042
     Dates: start: 20100527, end: 20100527
  2. NEOSAR [Concomitant]
     Active Substance: CYCLOPHOSPHAMIDE
     Dosage: UNK UNK, UNK
     Route: 065
  3. CYTOXAN [Concomitant]
     Active Substance: CYCLOPHOSPHAMIDE
     Dosage: UNK UNK, UNK
     Route: 065
  4. XOPENEX [Concomitant]
     Active Substance: LEVALBUTEROL HYDROCHLORIDE
     Dosage: UNK UNK, UNK
     Route: 065
  5. TAXOTERE [Suspect]
     Active Substance: DOCETAXEL
     Indication: BREAST CANCER
     Dosage: 150 MG, Q3W
     Route: 042
     Dates: start: 20100210, end: 20100210
  6. SUCRALFATE. [Concomitant]
     Active Substance: SUCRALFATE
     Dosage: UNK UNK, UNK
     Route: 065
  7. NASONEX [Concomitant]
     Active Substance: MOMETASONE FUROATE
     Dosage: UNK UNK, UNK
     Route: 065
  8. ADVAIR HFA [Concomitant]
     Active Substance: FLUTICASONE PROPIONATE\SALMETEROL XINAFOATE
     Dosage: UNK UNK, UNK
     Route: 065
  9. OMEPRAZOLE. [Concomitant]
     Active Substance: OMEPRAZOLE
     Dosage: UNK UNK, UNK
     Route: 065
  10. ZOLPIDEM [ZOLPIDEM TARTRATE] [Concomitant]
     Dosage: UNK UNK, UNK
     Route: 065
  11. IBUPROFEN. [Concomitant]
     Active Substance: IBUPROFEN
     Dosage: UNK UNK, UNK
     Route: 065
  12. RANITION [Concomitant]
     Dosage: UNK UNK, UNK
     Route: 065
  13. PLATINOL [Concomitant]
     Active Substance: CISPLATIN
     Dosage: UNK UNK, UNK
     Route: 065

REACTIONS (2)
  - Psychological trauma [Unknown]
  - Alopecia [Recovering/Resolving]

NARRATIVE: CASE EVENT DATE: 201011
